FAERS Safety Report 6478142-9 (Version None)
Quarter: 2009Q4

REPORT INFORMATION
  Report Type: 
  Country: None (occurrence: None)
  Receive Date: 20091207
  Receipt Date: 20091127
  Transmission Date: 20100525
  Serious: Yes (Life-Threatening, Hospitalization)
  Sender: FDA-Public Use
  Company Number: FR-ROCHE-666876

PATIENT
  Sex: Male
  Weight: 70 kg

DRUGS (6)
  1. XELODA [Suspect]
     Indication: COLON CANCER
     Route: 048
     Dates: start: 20090906, end: 20090920
  2. COVERSYL [Concomitant]
     Dosage: DOSE= 4
     Route: 048
  3. NOVONORM [Concomitant]
     Route: 048
  4. PLAVIX [Concomitant]
     Route: 048
  5. PARIET [Concomitant]
     Route: 048
  6. LANTUS [Concomitant]
     Route: 058

REACTIONS (4)
  - BONE MARROW FAILURE [None]
  - ENCEPHALOPATHY [None]
  - MUCOSAL INFLAMMATION [None]
  - STEVENS-JOHNSON SYNDROME [None]
